FAERS Safety Report 6250670-0 (Version None)
Quarter: 2009Q2

REPORT INFORMATION
  Report Type: 
  Country: None (occurrence: None)
  Receive Date: 20090630
  Receipt Date: 20090623
  Transmission Date: 20091009
  Serious: Yes (Death)
  Sender: FDA-Public Use
  Company Number: RU-ROCHE-592261

PATIENT
  Sex: Male

DRUGS (3)
  1. CAPECITABINE [Suspect]
     Indication: GASTRIC CANCER
     Dosage: FREQUENCY: DAYS 1-14 OF EVERY 3 WEEKS.
     Route: 048
     Dates: start: 20080507, end: 20080622
  2. PLACEBO [Suspect]
     Indication: GASTRIC CANCER
     Route: 042
     Dates: start: 20080507, end: 20080618
  3. CISPLATIN [Suspect]
     Indication: GASTRIC CANCER
     Route: 065
     Dates: start: 20080507, end: 20080507

REACTIONS (1)
  - DEATH [None]
